FAERS Safety Report 15466690 (Version 2)
Quarter: 2018Q4

REPORT INFORMATION
  Report Type: Spontaneous
  Country: US (occurrence: US)
  Receive Date: 20181005
  Receipt Date: 20181110
  Transmission Date: 20190204
  Serious: No
  Sender: FDA-Public Use
  Company Number: US-ASTRAZENECA-2018SF15405

PATIENT
  Sex: Female
  Weight: 130.2 kg

DRUGS (2)
  1. SYMBICORT [Suspect]
     Active Substance: BUDESONIDE\FORMOTEROL FUMARATE DIHYDRATE
     Dosage: /4.5 TWO PUFFS TWICE A DAY
     Route: 055
     Dates: start: 201808
  2. PROAIR HFA [Concomitant]
     Active Substance: ALBUTEROL SULFATE
     Dosage: AS REQUIRED
     Route: 055
     Dates: start: 20180723

REACTIONS (9)
  - Anxiety [Not Recovered/Not Resolved]
  - Device issue [Unknown]
  - Blood glucose abnormal [Unknown]
  - Off label use [Not Recovered/Not Resolved]
  - Fatigue [Not Recovered/Not Resolved]
  - Frustration tolerance decreased [Unknown]
  - Intentional product misuse [Unknown]
  - Product dose omission [Not Recovered/Not Resolved]
  - Confusional state [Unknown]
